FAERS Safety Report 7602791-5 (Version None)
Quarter: 2011Q3

REPORT INFORMATION
  Report Type: 
  Country: None (occurrence: None)
  Receive Date: 20110711
  Receipt Date: 20110711
  Transmission Date: 20111222
  Serious: Yes (Other)
  Sender: FDA-Public Use
  Company Number: None

PATIENT
  Age: 27 Year
  Sex: Male
  Weight: 77.1115 kg

DRUGS (1)
  1. PROPECIA [Suspect]
     Indication: ANDROGENETIC ALOPECIA
     Dosage: 1 MG 1 PILL DAILY PO
     Route: 048
     Dates: start: 20060301, end: 20070902

REACTIONS (17)
  - FATIGUE [None]
  - HAIR COLOUR CHANGES [None]
  - ASTHENIA [None]
  - ADRENAL DISORDER [None]
  - PSYCHIATRIC SYMPTOM [None]
  - ERECTILE DYSFUNCTION [None]
  - SENSORY LOSS [None]
  - FEELING ABNORMAL [None]
  - DEPRESSION [None]
  - ANXIETY [None]
  - SUICIDAL IDEATION [None]
  - EJACULATION FAILURE [None]
  - HEPATIC PAIN [None]
  - SOCIAL AVOIDANT BEHAVIOUR [None]
  - DISCOMFORT [None]
  - DISTURBANCE IN ATTENTION [None]
  - LOSS OF LIBIDO [None]
